FAERS Safety Report 5965614-6 (Version None)
Quarter: 2008Q4

REPORT INFORMATION
  Report Type: 
  Country: None (occurrence: None)
  Receive Date: 20081119
  Receipt Date: 20080818
  Transmission Date: 20090506
  Serious: Yes (Life-Threatening, Hospitalization)
  Sender: FDA-Public Use
  Company Number: 2008S1014815

PATIENT
  Age: 55 Year
  Sex: Female

DRUGS (5)
  1. ETOPOSIDE [Suspect]
     Indication: DRUG USE FOR UNKNOWN INDICATION
     Dosage: 114 MG; ONCE; 156 MG, DAILY;
     Dates: start: 20070810, end: 20070812
  2. ETOPOSIDE [Suspect]
     Indication: DRUG USE FOR UNKNOWN INDICATION
     Dosage: 114 MG; ONCE; 156 MG, DAILY;
     Dates: start: 20080110, end: 20080120
  3. ETOPOSIDE MERCK (ETOPOSIDE) [Concomitant]
  4. GRANOCYTE (LENOGRASTIM) [Suspect]
  5. NEORECORMON (EPOETIN BETA) [Concomitant]

REACTIONS (2)
  - FEBRILE BONE MARROW APLASIA [None]
  - PURPURA [None]
